FAERS Safety Report 10250257 (Version 2)
Quarter: 2014Q2

REPORT INFORMATION
  Report Type: Spontaneous
  Country: US (occurrence: None)
  Receive Date: 20140618
  Receipt Date: 20140627
  Transmission Date: 20141212
  Serious: Yes (Other)
  Sender: FDA-Public Use
  Company Number: 2014AP003334

PATIENT
  Age: 47 Year
  Sex: Male
  Weight: 55 kg

DRUGS (5)
  1. FERRIPROX [Suspect]
     Indication: THALASSAEMIA
     Route: 048
     Dates: start: 20131226, end: 20140501
  2. PENICILLIN [Concomitant]
  3. FOLIC ACID (FOLIC ACID) [Concomitant]
  4. TESTOSTERON CYPIONATE [Concomitant]
  5. CALCIUM (CALCIUM) [Concomitant]

REACTIONS (2)
  - Neutropenia [None]
  - White blood cell count decreased [None]
